FAERS Safety Report 6748840-8 (Version None)
Quarter: 2010Q2

REPORT INFORMATION
  Report Type: 
  Country: None (occurrence: None)
  Receive Date: 20100601
  Receipt Date: 20100525
  Transmission Date: 20101027
  Serious: Yes (Hospitalization)
  Sender: FDA-Public Use
  Company Number: PHHO2010DE07832

PATIENT
  Sex: Male

DRUGS (4)
  1. NO TREATMENT RECEIVED NOMED [Suspect]
     Indication: RENAL TRANSPLANT
  2. SANDIMMUNE [Suspect]
     Indication: RENAL TRANSPLANT
     Dosage: 300 MG
     Route: 048
     Dates: end: 20090724
  3. MYFORTIC [Suspect]
     Indication: RENAL TRANSPLANT
     Dosage: 1440 MG
     Route: 048
  4. PREDNISOLONE [Suspect]
     Dosage: 30 MG
     Route: 048

REACTIONS (3)
  - COMPLICATIONS OF TRANSPLANTED KIDNEY [None]
  - NAUSEA [None]
  - TRANSPLANT REJECTION [None]
